FAERS Safety Report 8037756-5 (Version None)
Quarter: 2012Q1

REPORT INFORMATION
  Report Type: 
  Country: None (occurrence: None)
  Receive Date: 20120111
  Receipt Date: 20120103
  Transmission Date: 20120608
  Serious: Yes (Other)
  Sender: FDA-Public Use
  Company Number: IE-ABBOTT-11P-229-0868546-00

PATIENT
  Age: 11 Year
  Sex: Male

DRUGS (7)
  1. VALPROIC ACID [Suspect]
     Dosage: PROLONGED-RELEASE GRANULES
     Route: 048
     Dates: start: 20110504
  2. METHOTREXATE [Concomitant]
     Indication: PRODUCT USED FOR UNKNOWN INDICATION
     Dates: start: 20090210
  3. VALPROIC ACID [Suspect]
     Indication: EPILEPSY
     Dosage: PROLONGED-RELEASE GRANULES, DAILY
     Route: 048
  4. PREDNISOLONE [Concomitant]
     Indication: PRODUCT USED FOR UNKNOWN INDICATION
     Dates: start: 20100921
  5. MERCAPTOPURINE [Concomitant]
     Indication: PRODUCT USED FOR UNKNOWN INDICATION
     Dates: start: 20090129
  6. SEPTRIN PAEDIATRIC [Concomitant]
     Indication: PRODUCT USED FOR UNKNOWN INDICATION
     Dates: start: 20090202
  7. LAMOTRIGINE [Concomitant]
     Indication: PRODUCT USED FOR UNKNOWN INDICATION
     Dates: start: 20101214

REACTIONS (4)
  - EPILEPSY [None]
  - PRODUCT QUALITY ISSUE [None]
  - DRUG INEFFECTIVE [None]
  - CONVULSION [None]
